FAERS Safety Report 17779174 (Version 1)
Quarter: 2020Q2

REPORT INFORMATION
  Report Type: Spontaneous
  Country: SK (occurrence: SK)
  Receive Date: 20200513
  Receipt Date: 20200513
  Transmission Date: 20200714
  Serious: Yes (Hospitalization)
  Sender: FDA-Public Use
  Company Number: SK-MYLANLABS-2020M1045911

PATIENT
  Age: 37 Year
  Sex: Female

DRUGS (5)
  1. LINEZOLID. [Suspect]
     Active Substance: LINEZOLID
     Indication: WOUND DEHISCENCE
     Dosage: UNK
     Route: 065
  2. CYCLOSERINE. [Suspect]
     Active Substance: CYCLOSERINE
     Indication: WOUND DEHISCENCE
     Dosage: UNK
     Route: 065
  3. CLOFAZIMINA [Concomitant]
     Active Substance: CLOFAZIMINE
     Indication: PRODUCT USED FOR UNKNOWN INDICATION
     Dosage: UNK
     Route: 065
  4. LEVOFLOXACIN. [Suspect]
     Active Substance: LEVOFLOXACIN
     Indication: WOUND DEHISCENCE
     Dosage: UNK
     Route: 065
  5. BEDAQUILINE [Concomitant]
     Active Substance: BEDAQUILINE
     Indication: PRODUCT USED FOR UNKNOWN INDICATION
     Dosage: UNK
     Route: 065

REACTIONS (2)
  - Tuberculosis [Unknown]
  - Product use in unapproved indication [Unknown]
